FAERS Safety Report 19688575 (Version 1)
Quarter: 2021Q3

REPORT INFORMATION
  Report Type: Spontaneous
  Country: US (occurrence: US)
  Receive Date: 20210811
  Receipt Date: 20210811
  Transmission Date: 20211014
  Serious: No
  Sender: FDA-Public Use
  Company Number: US-SA-2021SA259614

PATIENT
  Age: 62 Year
  Sex: Female

DRUGS (3)
  1. CORTISONE ACETATE. [Suspect]
     Active Substance: CORTISONE ACETATE
     Dosage: UNK
     Route: 065
  2. PLAVIX [Suspect]
     Active Substance: CLOPIDOGREL BISULFATE
     Indication: AORTIC BYPASS
     Dosage: UNK
     Route: 065
  3. HUMIRA [Suspect]
     Active Substance: ADALIMUMAB
     Dosage: 40 MG,1 IN 2 WK
     Route: 058
     Dates: start: 20210703

REACTIONS (3)
  - Incorrect dose administered [Recovered/Resolved]
  - Injection site bruising [Not Recovered/Not Resolved]
  - Device issue [Recovered/Resolved]
